FAERS Safety Report 8150197 (Version 2)
Quarter: 2013Q1

REPORT INFORMATION
  Report Type: Spontaneous
  Country: US (occurrence: US)
  Receive Date: 20110922
  Receipt Date: 20130215
  Transmission Date: 20140127
  Serious: Yes (Other)
  Sender: FDA-Public Use
  Company Number: US-ASTRAZENECA-2011SE12563

PATIENT
  Age: 559 Month
  Sex: Female
  Weight: 111.1 kg

DRUGS (18)
  1. SEROQUEL [Suspect]
     Route: 048
     Dates: start: 20041213
  2. MORPHINE SULFATE ER [Concomitant]
     Route: 048
     Dates: start: 20041008
  3. NEURONTIN [Concomitant]
     Route: 048
     Dates: start: 20041122
  4. NEURONTIN [Concomitant]
     Route: 048
     Dates: start: 20050112
  5. PROMETHAZINE HCL [Concomitant]
     Route: 048
     Dates: start: 20050112
  6. PREMARIN [Concomitant]
     Route: 048
     Dates: start: 20041001
  7. PREMARIN [Concomitant]
     Route: 048
     Dates: start: 20041215
  8. QUININE SULFATE [Concomitant]
     Route: 048
     Dates: start: 20051019
  9. TEMAZEPAM [Concomitant]
     Route: 048
     Dates: start: 20050608
  10. METHOCARBAMOL [Concomitant]
     Route: 048
     Dates: start: 20041123
  11. DOXEPIN HCL [Concomitant]
     Route: 048
     Dates: start: 20041216
  12. SKELAXIN [Concomitant]
     Route: 048
     Dates: start: 20041122
  13. CIMETIDINE [Concomitant]
     Route: 048
     Dates: start: 20080508
  14. ATENOLOL [Concomitant]
     Route: 048
     Dates: start: 20041206
  15. ATENOLOL [Concomitant]
     Route: 048
     Dates: start: 200612
  16. ACTOS [Concomitant]
     Route: 048
     Dates: end: 200612
  17. FLEXERIL [Concomitant]
     Route: 048
     Dates: start: 200612
  18. HYDROCHLOROTHIAZIDE [Concomitant]
     Dates: start: 200612

REACTIONS (4)
  - Pancreatitis [Unknown]
  - Diabetic coma [Unknown]
  - Type 2 diabetes mellitus [Unknown]
  - Diabetes mellitus inadequate control [Unknown]
